FAERS Safety Report 12595022 (Version 1)
Quarter: 2016Q3

REPORT INFORMATION
  Report Type: Spontaneous
  Country: US (occurrence: US)
  Receive Date: 20160726
  Receipt Date: 20160726
  Transmission Date: 20161109
  Serious: No
  Sender: FDA-Public Use
  Company Number: US-UNITED THERAPEUTICS-UNT-2015-013738

PATIENT
  Age: 84 Year
  Sex: Male
  Weight: 61.22 kg

DRUGS (7)
  1. TYVASO [Suspect]
     Active Substance: TREPROSTINIL
     Dosage: 6-18 MICROGRAMS, QID
  2. OPSUMIT [Concomitant]
     Active Substance: MACITENTAN
     Indication: PRODUCT USED FOR UNKNOWN INDICATION
  3. REMODULIN [Suspect]
     Active Substance: TREPROSTINIL
     Indication: PULMONARY ARTERIAL HYPERTENSION
     Dosage: 0.017 ?G/KG/MIN, CONTINUING
     Route: 058
     Dates: start: 20151006
  4. TYVASO [Suspect]
     Active Substance: TREPROSTINIL
     Indication: PRODUCT USED FOR UNKNOWN INDICATION
     Dosage: 6-18 MICROGRAMS, 7 TIMES DAILY
     Dates: start: 20121203
  5. REMODULIN [Suspect]
     Active Substance: TREPROSTINIL
     Dosage: 0.038 ?G/KG, CONTINUING
     Route: 058
  6. REMODULIN [Suspect]
     Active Substance: TREPROSTINIL
     Dosage: 0.03 ?G/KG/MIN,CONTINUING
     Route: 058
     Dates: start: 20151006
  7. ADCIRCA [Concomitant]
     Active Substance: TADALAFIL
     Indication: PRODUCT USED FOR UNKNOWN INDICATION
     Route: 065

REACTIONS (12)
  - Penile pain [Unknown]
  - Fluid retention [Recovered/Resolved]
  - Weight decreased [Unknown]
  - Exercise tolerance decreased [Unknown]
  - Oedema peripheral [Recovered/Resolved]
  - Infusion site haemorrhage [Unknown]
  - Drug dose omission [Unknown]
  - Flatulence [Unknown]
  - Device dislocation [Unknown]
  - Dyspnoea [Not Recovered/Not Resolved]
  - Abdominal distension [Unknown]
  - Abnormal faeces [Unknown]

NARRATIVE: CASE EVENT DATE: 20151023
